FAERS Safety Report 18794980 (Version 1)
Quarter: 2021Q1

REPORT INFORMATION
  Report Type: Spontaneous
  Country: US (occurrence: US)
  Receive Date: 20210127
  Receipt Date: 20210127
  Transmission Date: 20210419
  Serious: No
  Sender: FDA-Public Use
  Company Number: None

PATIENT
  Age: 57 Year
  Sex: Female
  Weight: 70.31 kg

DRUGS (11)
  1. IBRANCE [Suspect]
     Active Substance: PALBOCICLIB
     Indication: BREAST CANCER
     Route: 048
     Dates: start: 20201119, end: 20210127
  2. TYLENOL [Concomitant]
     Active Substance: ACETAMINOPHEN
  3. CAPECITABINE. [Concomitant]
     Active Substance: CAPECITABINE
  4. LIDOCAINE?PRILOCAINE [Concomitant]
     Active Substance: LIDOCAINE\PRILOCAINE
  5. PROCHLORPERAZINE MALEATE. [Concomitant]
     Active Substance: PROCHLORPERAZINE MALEATE
  6. LETROZOLE. [Concomitant]
     Active Substance: LETROZOLE
  7. DURAGESIC?12 [Concomitant]
  8. ALEVE [Concomitant]
     Active Substance: NAPROXEN SODIUM
  9. MULTI VITAMIN [Concomitant]
     Active Substance: VITAMINS
  10. ZOFRAN [Concomitant]
     Active Substance: ONDANSETRON HYDROCHLORIDE
  11. VALIUM [Concomitant]
     Active Substance: DIAZEPAM

REACTIONS (1)
  - Disease progression [None]

NARRATIVE: CASE EVENT DATE: 20210127
